FAERS Safety Report 11714999 (Version 3)
Quarter: 2015Q4

REPORT INFORMATION
  Report Type: Report from Study
  Country: US (occurrence: US)
  Receive Date: 20151109
  Receipt Date: 20151217
  Transmission Date: 20160304
  Serious: Yes (Hospitalization)
  Sender: FDA-Public Use
  Company Number: US-JNJFOC-20150810080

PATIENT
  Age: 68 Year
  Sex: Male

DRUGS (7)
  1. IRON [Concomitant]
     Active Substance: IRON
  2. PROCRIT [Concomitant]
     Active Substance: ERYTHROPOIETIN
  3. IMBRUVICA [Suspect]
     Active Substance: IBRUTINIB
     Indication: MANTLE CELL LYMPHOMA
     Route: 048
     Dates: start: 20140730, end: 20151015
  4. IMBRUVICA [Suspect]
     Active Substance: IBRUTINIB
     Indication: DIFFUSE LARGE B-CELL LYMPHOMA STAGE II
     Route: 048
     Dates: start: 20140730, end: 20151015
  5. IMBRUVICA [Suspect]
     Active Substance: IBRUTINIB
     Indication: MANTLE CELL LYMPHOMA
     Route: 048
     Dates: start: 2015
  6. VITAMIN D [Concomitant]
     Active Substance: CHOLECALCIFEROL
  7. IMBRUVICA [Suspect]
     Active Substance: IBRUTINIB
     Indication: DIFFUSE LARGE B-CELL LYMPHOMA STAGE II
     Route: 048
     Dates: start: 2015

REACTIONS (5)
  - Gastric haemorrhage [Unknown]
  - Thrombosis [Unknown]
  - Abdominal pain upper [Not Recovered/Not Resolved]
  - Constipation [Unknown]
  - Gastrointestinal disorder [Not Recovered/Not Resolved]

NARRATIVE: CASE EVENT DATE: 201510
